FAERS Safety Report 10080303 (Version 3)
Quarter: 2014Q2

REPORT INFORMATION
  Report Type: Spontaneous
  Country: US (occurrence: US)
  Receive Date: 20140415
  Receipt Date: 20140510
  Transmission Date: 20141212
  Serious: Yes (Other)
  Sender: FDA-Public Use
  Company Number: US-RB-060639-13

PATIENT
  Sex: Female

DRUGS (5)
  1. BUPRENORPHINE UNSPECIFIED [Suspect]
     Indication: DRUG DEPENDENCE
     Dosage: CUTTING 8 MG UNIT DOSE TO MAKE 12 MG. TAKES 10-12 MG DAILY,
     Route: 060
  2. OMEPRAZOLE [Concomitant]
     Indication: GASTROOESOPHAGEAL REFLUX DISEASE
  3. PRENATAL VITAMINS [Concomitant]
     Indication: NUTRITIONAL SUPPLEMENTATION
     Dosage: DOSING DETAILS UNKNOWN
     Route: 065
  4. TOBACCO [Concomitant]
     Indication: PRODUCT USED FOR UNKNOWN INDICATION
     Dosage: 20 CIGARETTES DAILY
     Route: 055
  5. HYDROXYZINE [Concomitant]
     Indication: INSOMNIA
     Dosage: DAILY DOSE 25-50 MG
     Route: 065

REACTIONS (3)
  - Maternal exposure during pregnancy [Recovered/Resolved]
  - Premature separation of placenta [Recovered/Resolved]
  - Wrong technique in drug usage process [Not Recovered/Not Resolved]
